FAERS Safety Report 5106276-X (Version None)
Quarter: 2006Q3

REPORT INFORMATION
  Report Type: 
  Country: None (occurrence: None)
  Receive Date: 20060918
  Receipt Date: 20060818
  Transmission Date: 20061208
  Serious: Yes (Hospitalization, Other)
  Sender: FDA-Public Use
  Company Number: PHFR2006GB02601

PATIENT
  Age: 55 Year
  Sex: Male

DRUGS (4)
  1. CLOZARIL [Suspect]
     Indication: SCHIZOPHRENIA
     Dosage: 12.5MG/DAY
     Route: 048
     Dates: start: 20060803
  2. CLOZARIL [Suspect]
     Dosage: 25MG/DAY
     Route: 048
     Dates: start: 20060804
  3. CLOZARIL [Suspect]
     Dosage: 225MG/DAY
     Route: 048
     Dates: start: 20060815
  4. DIAZEPAM [Concomitant]
     Indication: INSOMNIA
     Dosage: 2 MG/DAY
     Route: 048
     Dates: start: 20060803, end: 20060815

REACTIONS (12)
  - C-REACTIVE PROTEIN INCREASED [None]
  - CHEST DISCOMFORT [None]
  - DYSPNOEA [None]
  - ELECTROCARDIOGRAM T WAVE INVERSION [None]
  - HYPERTHERMIA [None]
  - ISCHAEMIA [None]
  - LOWER RESPIRATORY TRACT INFECTION [None]
  - OXYGEN SATURATION DECREASED [None]
  - TROPONIN T INCREASED [None]
  - UPPER RESPIRATORY TRACT INFECTION [None]
  - VENTRICULAR HYPERTROPHY [None]
  - WHITE BLOOD CELL COUNT INCREASED [None]
